FAERS Safety Report 6042740-7 (Version None)
Quarter: 2009Q1

REPORT INFORMATION
  Report Type: 
  Country: None (occurrence: None)
  Receive Date: 20090119
  Receipt Date: 20090112
  Transmission Date: 20090719
  Serious: Yes (Other)
  Sender: FDA-Public Use
  Company Number: US-JNJFOC-20090102470

PATIENT
  Age: 2 Week
  Sex: Male
  Weight: 3.18 kg

DRUGS (2)
  1. INFANTS MYLICON NON-STAINING FORMULA [Suspect]
     Indication: FLATULENCE
     Route: 048
  2. INFANTS FORMULA [Concomitant]

REACTIONS (1)
  - HAEMATOCHEZIA [None]
